FAERS Safety Report 7266632-0 (Version None)
Quarter: 2011Q1

REPORT INFORMATION
  Report Type: 
  Country: None (occurrence: None)
  Receive Date: 20110131
  Receipt Date: 20110118
  Transmission Date: 20110831
  Serious: Yes (Other)
  Sender: FDA-Public Use
  Company Number: US-ELI_LILLY_AND_COMPANY-US201002006767

PATIENT
  Sex: Female

DRUGS (24)
  1. FORTEO [Suspect]
     Dosage: 20 UG, DAILY (1/D)
  2. TRAMADOL HCL [Concomitant]
     Dosage: 100 MG, AS NEEDED
  3. NASONEX [Concomitant]
     Dosage: 4 D/F, DAILY (1/D)
  4. HYDROCHLOROTHIAZIDE [Concomitant]
     Dosage: 12.5 MG, DAILY (1/D)
  5. THIAMINE /00056102/ [Concomitant]
     Dosage: 100 MG, DAILY (1/D)
  6. GABAPENTINE [Concomitant]
     Dosage: 300 MG, 2/D
  7. PREDNISONE [Concomitant]
     Dosage: 2.5 MG, DAILY (1/D)
  8. TOPROL-XL [Concomitant]
     Dosage: 50 MG, DAILY (1/D)
  9. SPIRIVA [Concomitant]
     Dosage: 18 UG, DAILY (1/D)
     Route: 055
  10. VIGAMOX [Concomitant]
     Dosage: 1 D/F, 3/D
  11. VITAMIN D [Concomitant]
     Dosage: 1000 IU, UNK
  12. NEVANAC [Concomitant]
     Dosage: 1 D/F, 3/D
  13. FORTEO [Suspect]
     Dosage: 20 UG, DAILY (1/D)
  14. FORTEO [Suspect]
     Dosage: 20 UG, DAILY (1/D)
  15. MULTI-VITAMIN [Concomitant]
     Dosage: UNK, DAILY (1/D)
  16. CALCARB WITH VITAMIN D [Concomitant]
     Dosage: UNK, DAILY (1/D)
  17. POTASSIUM CHLORIDE [Concomitant]
     Dosage: 10 MEQ, DAILY (1/D)
  18. FORTEO [Suspect]
     Indication: OSTEOPOROSIS
     Dosage: 20 UG, DAILY (1/D)
     Dates: start: 20100212
  19. FORTEO [Suspect]
     Dosage: 20 UG, DAILY (1/D)
  20. FORTEO [Suspect]
     Dosage: 20 UG, DAILY (1/D)
  21. NORTRIPTYLINE [Concomitant]
     Dosage: 10 MG, DAILY (1/D)
  22. NORVASC [Concomitant]
     Indication: BLOOD PRESSURE ABNORMAL
     Dosage: 2.5 MG, DAILY (1/D)
  23. FOLIC ACID [Concomitant]
     Dosage: 1 MG, DAILY (1/D)
  24. XOPENEX HFA [Concomitant]
     Dosage: 90 UG, AS NEEDED 4-6 HRS

REACTIONS (26)
  - CONSTIPATION [None]
  - DIZZINESS [None]
  - BACK PAIN [None]
  - BLOOD PRESSURE INCREASED [None]
  - MUSCLE SPASMS [None]
  - ABDOMINAL PAIN UPPER [None]
  - OROPHARYNGEAL PAIN [None]
  - APHONIA [None]
  - MUSCULAR WEAKNESS [None]
  - HIP FRACTURE [None]
  - CATARACT [None]
  - DIARRHOEA [None]
  - MEDICATION ERROR [None]
  - FATIGUE [None]
  - MYALGIA [None]
  - DECREASED APPETITE [None]
  - PAIN IN EXTREMITY [None]
  - VOMITING [None]
  - PAIN [None]
  - ARTHRALGIA [None]
  - NAUSEA [None]
  - PAIN IN JAW [None]
  - PAIN OF SKIN [None]
  - MALAISE [None]
  - ASTHENIA [None]
  - HYPERHIDROSIS [None]
